FAERS Safety Report 14748888 (Version 1)
Quarter: 2018Q2

REPORT INFORMATION
  Report Type: Spontaneous
  Country: US (occurrence: US)
  Receive Date: 20180411
  Receipt Date: 20180411
  Transmission Date: 20180711
  Serious: No
  Sender: FDA-Public Use
  Company Number: US-AMGEN-USASP2017189274

PATIENT
  Age: 76 Year
  Sex: Female

DRUGS (1)
  1. PROLIA [Suspect]
     Active Substance: DENOSUMAB
     Indication: OSTEOPOROSIS POSTMENOPAUSAL
     Dosage: 60 MG,
     Route: 065
     Dates: start: 20171212

REACTIONS (5)
  - Hot flush [Unknown]
  - Throat tightness [Unknown]
  - Pain [Unknown]
  - Depression [Unknown]
  - Chills [Unknown]

NARRATIVE: CASE EVENT DATE: 201712
